FAERS Safety Report 6138128-0 (Version None)
Quarter: 2009Q1

REPORT INFORMATION
  Report Type: 
  Country: None (occurrence: None)
  Receive Date: 20090331
  Receipt Date: 20090326
  Transmission Date: 20090719
  Serious: Yes (Hospitalization)
  Sender: FDA-Public Use
  Company Number: FR-ABBOTT-09P-056-0564886-00

PATIENT
  Sex: Female
  Weight: 94 kg

DRUGS (6)
  1. SIBUTRAL [Suspect]
     Indication: OVERWEIGHT
     Route: 048
     Dates: start: 20020101, end: 20020101
  2. DEMINTEL [Suspect]
     Indication: OVERWEIGHT
     Dosage: DURING AT LEAST 2 YEARS, MORE THAN 15 TO 20 YEARS AGO
     Route: 048
  3. DONORMYL [Suspect]
     Indication: DRUG USE FOR UNKNOWN INDICATION
     Route: 048
     Dates: end: 20090101
  4. XENICAL [Concomitant]
     Indication: OVERWEIGHT
     Route: 048
     Dates: start: 20010101, end: 20010101
  5. LEVOTHYROXINE SODIUM [Concomitant]
     Indication: DRUG USE FOR UNKNOWN INDICATION
     Dosage: 75 TO 150 MCG/ DAY, LONG TERM TREATMENT
     Route: 048
  6. PRAVASTATIN [Concomitant]
     Indication: DRUG USE FOR UNKNOWN INDICATION
     Route: 048

REACTIONS (2)
  - ABDOMINAL PAIN [None]
  - RETROPERITONEAL FIBROSIS [None]
